FAERS Safety Report 10245264 (Version 1)
Quarter: 2014Q2

REPORT INFORMATION
  Report Type: Spontaneous
  Country: US (occurrence: US)
  Receive Date: 20140618
  Receipt Date: 20140618
  Transmission Date: 20141212
  Serious: No
  Sender: FDA-Public Use
  Company Number: US-009507513-1406USA005595

PATIENT
  Sex: 0

DRUGS (1)
  1. NEXPLANON [Suspect]
     Dosage: 1 DF, ONCE EVERY THREE YEARS
     Route: 059
     Dates: start: 20140530, end: 20140602

REACTIONS (2)
  - Device breakage [Unknown]
  - No adverse event [Unknown]
